FAERS Safety Report 8101035-8 (Version None)
Quarter: 2012Q1

REPORT INFORMATION
  Report Type: 
  Country: None (occurrence: None)
  Receive Date: 20120131
  Receipt Date: 20120120
  Transmission Date: 20120608
  Serious: Yes (Other)
  Sender: FDA-Public Use
  Company Number: FR-JNJFOC-20111013242

PATIENT
  Sex: Male

DRUGS (3)
  1. REMICADE [Suspect]
     Route: 042
     Dates: start: 20070101
  2. REMICADE [Suspect]
     Indication: PSORIASIS
     Route: 042
     Dates: start: 20111024
  3. REMICADE [Suspect]
     Route: 042
     Dates: start: 20110829

REACTIONS (2)
  - HEPATIC ENZYME INCREASED [None]
  - THROMBOCYTOPENIA [None]
